FAERS Safety Report 5744528-0 (Version None)
Quarter: 2008Q2

REPORT INFORMATION
  Report Type: 
  Country: None (occurrence: None)
  Receive Date: 20080516
  Receipt Date: 20080430
  Transmission Date: 20081010
  Serious: Yes (Death, Life-Threatening, Hospitalization, Disabling)
  Sender: FDA-Public Use
  Company Number: 2008AL003014

PATIENT
  Age: 78 Year
  Sex: Female

DRUGS (3)
  1. DIGOXIN [Suspect]
     Indication: HEART RATE INCREASED
     Dosage: DAILY, PO
     Route: 048
  2. SYNTHROID [Concomitant]
  3. ATENOLOL [Concomitant]

REACTIONS (2)
  - ASTHENIA [None]
  - CONFUSIONAL STATE [None]
